FAERS Safety Report 4462070-4 (Version None)
Quarter: 2004Q3

REPORT INFORMATION
  Report Type: 
  Country: None (occurrence: None)
  Receive Date: 20040927
  Receipt Date: 20040927
  Transmission Date: 20050211
  Serious: Yes (Hospitalization)
  Sender: FDA-Public Use
  Company Number: None

PATIENT
  Age: 77 Year
  Sex: Female

DRUGS (2)
  1. CYTARBABINE (ARA C) [Suspect]
     Indication: ACUTE MYELOID LEUKAEMIA
     Dosage: IV X 7 DAYS
     Route: 042
     Dates: start: 20040913, end: 20040920
  2. CLOFARABINE [Suspect]
     Dosage: IV X 5 DAYS
     Route: 042
     Dates: start: 20040914, end: 20040919

REACTIONS (3)
  - ALANINE AMINOTRANSFERASE INCREASED [None]
  - ASPARTATE AMINOTRANSFERASE INCREASED [None]
  - JAUNDICE [None]
